FAERS Safety Report 20935067 (Version 1)
Quarter: 2022Q2

REPORT INFORMATION
  Report Type: Report from Study
  Country: US (occurrence: US)
  Receive Date: 20220608
  Receipt Date: 20220608
  Transmission Date: 20220721
  Serious: Yes (Hospitalization, Other)
  Sender: FDA-Public Use
  Company Number: US-BRISTOL-MYERS SQUIBB COMPANY-2022-049343

PATIENT
  Age: 79 Year
  Sex: Male
  Weight: 86.18 kg

DRUGS (20)
  1. REVLIMID [Suspect]
     Active Substance: LENALIDOMIDE
     Indication: Plasma cell myeloma
     Route: 048
     Dates: start: 20170719
  2. PROBIOTIC ACIDOPHILUS [LACTOBACILLUS ACIDOPHILUS] [Concomitant]
  3. DEXAMETHASONE [Concomitant]
     Active Substance: DEXAMETHASONE
  4. ASPIRIN [Concomitant]
     Active Substance: ASPIRIN
  5. PROSCAR [Concomitant]
     Active Substance: FINASTERIDE
  6. LUMIGAN [Concomitant]
     Active Substance: BIMATOPROST
  7. FLOMAX [Concomitant]
     Active Substance: TAMSULOSIN HYDROCHLORIDE
  8. PATADAY [Concomitant]
     Active Substance: OLOPATADINE HYDROCHLORIDE
  9. ISOSORBIDE [Concomitant]
     Active Substance: ISOSORBIDE
  10. SIMVASTATIN [Concomitant]
     Active Substance: SIMVASTATIN
  11. PRILOSEC [Concomitant]
     Active Substance: OMEPRAZOLE MAGNESIUM
  12. GABAPENTIN [Concomitant]
     Active Substance: GABAPENTIN
  13. METOPROLOL SUCCINATE [Concomitant]
     Active Substance: METOPROLOL SUCCINATE
  14. VITAMIN D2 [Concomitant]
     Active Substance: ERGOCALCIFEROL
  15. VITAMIN C [Concomitant]
     Active Substance: ASCORBIC ACID
  16. COBAMAMIDE [Concomitant]
     Active Substance: COBAMAMIDE
  17. FERROUS SULFATE [Concomitant]
     Active Substance: FERROUS SULFATE
  18. ALBUTEROL [Concomitant]
     Active Substance: ALBUTEROL
  19. NITROGLYCERIN [Concomitant]
     Active Substance: NITROGLYCERIN
  20. REFRESH TEARS [Concomitant]
     Active Substance: CARBOXYMETHYLCELLULOSE SODIUM

REACTIONS (2)
  - COVID-19 pneumonia [Unknown]
  - Cystitis [Unknown]
